FAERS Safety Report 19312386 (Version 1)
Quarter: 2021Q2

REPORT INFORMATION
  Report Type: Spontaneous
  Country: US (occurrence: US)
  Receive Date: 20210526
  Receipt Date: 20210526
  Transmission Date: 20210717
  Serious: Yes (Hospitalization)
  Sender: FDA-Public Use
  Company Number: None

PATIENT
  Age: 68 Year
  Sex: Female

DRUGS (9)
  1. AMOX/K CLAV [Concomitant]
     Active Substance: AMOXICILLIN\CLAVULANATE POTASSIUM
  2. FERROUS GLUC [Concomitant]
  3. OMEPRAZOLE. [Concomitant]
     Active Substance: OMEPRAZOLE
  4. AMBRISENTAN 10MG TAB [Suspect]
     Active Substance: AMBRISENTAN
     Indication: PULMONARY ARTERIAL HYPERTENSION
     Route: 048
     Dates: start: 20200108
  5. SILDENAFIL 20 MG TAB [Suspect]
     Active Substance: SILDENAFIL
     Indication: PULMONARY ARTERIAL HYPERTENSION
     Route: 048
     Dates: start: 20210211
  6. ATORVASTATIN [Concomitant]
     Active Substance: ATORVASTATIN
  7. FUROSEMIDE. [Concomitant]
     Active Substance: FUROSEMIDE
  8. HYDROXYCHLOR [Concomitant]
     Active Substance: HYDROXYCHLOROQUINE
  9. SPIRONOLACT [Concomitant]
     Active Substance: SPIRONOLACTONE

REACTIONS (2)
  - Pericardial effusion [None]
  - Pulmonary oedema [None]

NARRATIVE: CASE EVENT DATE: 20210425
